FAERS Safety Report 6383548-2 (Version None)
Quarter: 2009Q3

REPORT INFORMATION
  Report Type: 
  Country: None (occurrence: None)
  Receive Date: 20090928
  Receipt Date: 20090909
  Transmission Date: 20100115
  Serious: Yes (Hospitalization)
  Sender: FDA-Public Use
  Company Number: ACO_00603_2009

PATIENT
  Age: 58 Year
  Sex: Female
  Weight: 70 kg

DRUGS (13)
  1. TIZANIDINE HYDROCHLORIDE [Suspect]
     Indication: PSORIATIC ARTHROPATHY
     Dosage: (DF ORAL)
     Route: 048
  2. CATAFLAM [Suspect]
     Indication: PSORIATIC ARTHROPATHY
     Dosage: (DF ORAL)
     Route: 048
  3. VOLTAREN [Suspect]
     Indication: PSORIATIC ARTHROPATHY
     Dosage: (DF ORAL)
     Route: 048
  4. SNOVALGINA (NOVALGINA - METAMIZOLE  SODIUM) (NOT SPECIFIED) [Suspect]
     Indication: PSORIATIC ARTHROPATHY
     Dosage: (1 G BID ORAL)
     Route: 048
  5. INDOMETHACIN [Suspect]
     Indication: PSORIATIC ARTHROPATHY
     Dosage: (DF ORAL)
     Route: 048
  6. SULFASALAZINE [Suspect]
     Indication: PSORIATIC ARTHROPATHY
     Dosage: (DF ORAL)
     Route: 048
  7. BIOFENAC  /01140001/ (BIOFENAC 'UCB'  ACECLOFENAC) (NOT SPECIFIED) [Suspect]
     Indication: PSORIATIC ARTHROPATHY
     Dosage: (DF ORAL)
     Route: 048
  8. DIPROSPAN /00582101/ (DIPROSPAN - BETAMETHASONE DIPROPIONATE/BETAMETHA [Suspect]
     Indication: PSORIATIC ARTHROPATHY
     Dosage: DF ORAL)
     Route: 048
  9. TYLEX  /00116401/ (TYLEX - COEDEINE  PHOSPHATE/PARACETAMOL) (NOT SPECI [Suspect]
     Indication: PSORIATIC ARTHROPATHY
     Dosage: (DF ORAL)
     Route: 048
  10. THALIDOMIDE [Suspect]
     Indication: PSORIATIC ARTHROPATHY
     Dosage: (DF ORAL)
     Route: 048
  11. ARCOXIA [Suspect]
     Indication: PSORIATIC ARTHROPATHY
     Dosage: (120 MGM, ORAL)
     Route: 048
  12. VIOXX [Suspect]
     Indication: PSORIATIC ARTHROPATHY
     Dosage: (25 MG, ORAL); (50 MG , ORAL)
     Route: 048
  13. DORFLEX (DORFLEX - CAFFEINE/METAMIZOLE/METAMIZOLE SODIUM/ORPHENADRINE [Suspect]
     Indication: PSORIATIC ARTHROPATHY
     Dosage: (500 MG, ORAL)
     Route: 048

REACTIONS (6)
  - DENTAL IMPLANTATION [None]
  - GALLBLADDER DISORDER [None]
  - GALLBLADDER OPERATION [None]
  - MALAISE [None]
  - PROCEDURAL COMPLICATION [None]
  - TOOTH AVULSION [None]
